FAERS Safety Report 23462285 (Version 1)
Quarter: 2024Q1

REPORT INFORMATION
  Report Type: Report from Study
  Country: US (occurrence: US)
  Receive Date: 20240131
  Receipt Date: 20240131
  Transmission Date: 20240410
  Serious: Yes (Other)
  Sender: FDA-Public Use
  Company Number: US-Merck Healthcare KGaA-2024004608

PATIENT
  Sex: Male

DRUGS (1)
  1. BAVENCIO [Suspect]
     Active Substance: AVELUMAB
     Indication: Bladder cancer
     Dosage: BAVENCIO (AVELUMAB) 20 MG/ML
     Route: 042

REACTIONS (4)
  - Blood pressure increased [Unknown]
  - Tremor [Unknown]
  - Feeling cold [Unknown]
  - Chills [Unknown]
